FAERS Safety Report 18339786 (Version 2)
Quarter: 2020Q4

REPORT INFORMATION
  Report Type: Spontaneous
  Country: US (occurrence: US)
  Receive Date: 20201002
  Receipt Date: 20201124
  Transmission Date: 20210113
  Serious: Yes (Hospitalization, Other)
  Sender: FDA-Public Use
  Company Number: US-ASTRAZENECA-2020SF25102

PATIENT
  Age: 44 Year
  Sex: Female
  Weight: 54.4 kg

DRUGS (28)
  1. PANTOPRAZOLE [Suspect]
     Active Substance: PANTOPRAZOLE
     Indication: GASTROOESOPHAGEAL REFLUX DISEASE
     Route: 065
     Dates: start: 2013
  2. MYFORTIC [Concomitant]
     Active Substance: MYCOPHENOLATE SODIUM
  3. METOCLOPRAMIDE. [Concomitant]
     Active Substance: METOCLOPRAMIDE
  4. ZOLOFT [Concomitant]
     Active Substance: SERTRALINE HYDROCHLORIDE
  5. PREVACID [Suspect]
     Active Substance: LANSOPRAZOLE
     Indication: GASTROOESOPHAGEAL REFLUX DISEASE
     Route: 065
  6. SENSIPAR [Concomitant]
     Active Substance: CINACALCET HYDROCHLORIDE
  7. PROGRAF [Concomitant]
     Active Substance: TACROLIMUS
  8. TRAMADOL. [Concomitant]
     Active Substance: TRAMADOL
  9. ACYCLOVIR. [Concomitant]
     Active Substance: ACYCLOVIR
  10. RANITIDINE. [Concomitant]
     Active Substance: RANITIDINE
  11. CODEINE [Concomitant]
     Active Substance: CODEINE
  12. NEXIUM [Suspect]
     Active Substance: ESOMEPRAZOLE MAGNESIUM
     Indication: GASTROOESOPHAGEAL REFLUX DISEASE
     Route: 048
     Dates: start: 2011, end: 2014
  13. RENVELA [Concomitant]
     Active Substance: SEVELAMER CARBONATE
  14. LISINOPRIL. [Concomitant]
     Active Substance: LISINOPRIL
  15. NEXIUM [Suspect]
     Active Substance: ESOMEPRAZOLE MAGNESIUM
     Indication: GASTROOESOPHAGEAL REFLUX DISEASE
     Route: 048
     Dates: start: 2011, end: 2012
  16. ZOLPIDEM [Concomitant]
     Active Substance: ZOLPIDEM TARTRATE
  17. SODIUM BICARBONATE. [Concomitant]
     Active Substance: SODIUM BICARBONATE
  18. FUROSEMIDE. [Concomitant]
     Active Substance: FUROSEMIDE
  19. NASONEX [Concomitant]
     Active Substance: MOMETASONE FUROATE
  20. PREVACID [Suspect]
     Active Substance: LANSOPRAZOLE
     Indication: GASTROOESOPHAGEAL REFLUX DISEASE
     Route: 048
     Dates: start: 20051109
  21. PANTOPRAZOLE [Suspect]
     Active Substance: PANTOPRAZOLE
     Indication: GASTROOESOPHAGEAL REFLUX DISEASE
     Route: 048
     Dates: start: 20140605
  22. PREDNISONE. [Concomitant]
     Active Substance: PREDNISONE
  23. TEMAZEPAM. [Concomitant]
     Active Substance: TEMAZEPAM
  24. VITAMIN D [Concomitant]
     Active Substance: VITAMIN D NOS
  25. AMOXICILLIN. [Concomitant]
     Active Substance: AMOXICILLIN
  26. CLARITHROMYCIN. [Concomitant]
     Active Substance: CLARITHROMYCIN
  27. ACTONEL [Concomitant]
     Active Substance: RISEDRONATE SODIUM
  28. NEXIUM [Suspect]
     Active Substance: ESOMEPRAZOLE MAGNESIUM
     Indication: GASTROOESOPHAGEAL REFLUX DISEASE
     Route: 048
     Dates: start: 20110901

REACTIONS (5)
  - End stage renal disease [Unknown]
  - Acute kidney injury [Not Recovered/Not Resolved]
  - Chronic kidney disease [Unknown]
  - Renal failure [Not Recovered/Not Resolved]
  - Nephrogenic anaemia [Unknown]
